FAERS Safety Report 26072375 (Version 2)
Quarter: 2025Q4

REPORT INFORMATION
  Report Type: Spontaneous
  Country: US (occurrence: US)
  Receive Date: 20251120
  Receipt Date: 20251226
  Transmission Date: 20260118
  Serious: No
  Sender: SANOFI AVENTIS
  Company Number: US-SA-2025SA342170

PATIENT
  Age: 67 Year
  Sex: Male
  Weight: 73.48 kg

DRUGS (2)
  1. WAYRILZ [Suspect]
     Active Substance: RILZABRUTINIB
     Indication: Immune thrombocytopenia
     Dosage: 400 MG, BID
     Route: 048
     Dates: start: 20251030
  2. WAYRILZ [Suspect]
     Active Substance: RILZABRUTINIB
     Dosage: 200 MG, BID
     Route: 048
     Dates: start: 2025, end: 2025

REACTIONS (3)
  - Diarrhoea [Unknown]
  - Disease progression [Unknown]
  - Incorrect dosage administered [Unknown]

NARRATIVE: CASE EVENT DATE: 20250101
